FAERS Safety Report 6199626-7 (Version None)
Quarter: 2009Q2

REPORT INFORMATION
  Report Type: 
  Country: None (occurrence: None)
  Receive Date: 20090522
  Receipt Date: 20080812
  Transmission Date: 20091009
  Serious: No
  Sender: FDA-Public Use
  Company Number: A0742446A

PATIENT

DRUGS (2)
  1. BACTROBAN [Suspect]
  2. TYKERB [Suspect]

REACTIONS (1)
  - RASH [None]
